FAERS Safety Report 10165602 (Version 1)
Quarter: 2014Q2

REPORT INFORMATION
  Report Type: Spontaneous
  Country: US (occurrence: US)
  Receive Date: 20140510
  Receipt Date: 20140510
  Transmission Date: 20141212
  Serious: No
  Sender: FDA-Public Use
  Company Number: US-BRISTOL-MYERS SQUIBB COMPANY-20564001

PATIENT
  Age: 39 Year
  Sex: Female
  Weight: 94.78 kg

DRUGS (4)
  1. BYDUREON [Suspect]
     Indication: TYPE 2 DIABETES MELLITUS
     Dates: start: 20140316
  2. LEVEMIR [Concomitant]
  3. INSULIN [Concomitant]
     Route: 058
  4. NOVOLOG [Concomitant]

REACTIONS (2)
  - Injection site extravasation [Recovered/Resolved]
  - Underdose [Unknown]
